FAERS Safety Report 4527006-6 (Version None)
Quarter: 2004Q4

REPORT INFORMATION
  Report Type: 
  Country: None (occurrence: None)
  Receive Date: 20041213
  Receipt Date: 20041130
  Transmission Date: 20050328
  Serious: Yes (Hospitalization)
  Sender: FDA-Public Use
  Company Number: 2004103919

PATIENT
  Sex: Female

DRUGS (2)
  1. NEURONTIN [Suspect]
     Indication: NEUROPATHIC PAIN
     Dosage: ORAL
     Route: 048
     Dates: start: 20000601
  2. BROMAZEPAM (BROMAZEPAM) [Concomitant]

REACTIONS (2)
  - DISLOCATION OF VERTEBRA [None]
  - ROAD TRAFFIC ACCIDENT [None]
